FAERS Safety Report 6790579-7 (Version None)
Quarter: 2010Q2

REPORT INFORMATION
  Report Type: 
  Country: None (occurrence: None)
  Receive Date: 20100624
  Receipt Date: 20100615
  Transmission Date: 20101027
  Serious: Yes (Other)
  Sender: FDA-Public Use
  Company Number: ES-ABBOTT-10P-144-0651532-00

PATIENT
  Age: 51 Year
  Sex: Female

DRUGS (11)
  1. HUMIRA [Suspect]
     Indication: CROHN'S DISEASE
     Dosage: INITIAL DOSE (ONLY RECEIVED 120 MG)
     Route: 058
     Dates: start: 20100501, end: 20100501
  2. HUMIRA [Suspect]
     Dosage: SECOND DOSE (ONLY RECEIVED 40 MG)
     Route: 058
     Dates: start: 20100601
  3. MORPHINE PAIN PATCH [Concomitant]
     Indication: ANKYLOSING SPONDYLITIS
     Dosage: PATCH
  4. NEXIUM [Concomitant]
     Indication: PROPHYLAXIS
     Route: 048
  5. PENTASA [Concomitant]
     Indication: CROHN'S DISEASE
     Route: 048
  6. IMUREL [Concomitant]
     Indication: CROHN'S DISEASE
     Route: 048
  7. PREDNISONA [Concomitant]
     Indication: CROHN'S DISEASE
     Route: 048
     Dates: start: 20100501
  8. CORTICOIDS [Concomitant]
     Indication: CROHN'S DISEASE
     Route: 042
  9. CIPROFLOXACINO [Concomitant]
     Indication: CROHN'S DISEASE
     Route: 042
  10. METRONIDAZOLE [Concomitant]
     Indication: CROHN'S DISEASE
     Route: 065
  11. DEPRESSION TREATMENT [Concomitant]
     Indication: DEPRESSION
     Route: 048

REACTIONS (5)
  - AFFECTIVE DISORDER [None]
  - APATHY [None]
  - INCORRECT DOSE ADMINISTERED [None]
  - NEGATIVISM [None]
  - POOR PERSONAL HYGIENE [None]
